FAERS Safety Report 14376183 (Version 6)
Quarter: 2019Q2

REPORT INFORMATION
  Report Type: Spontaneous
  Country: US (occurrence: US)
  Receive Date: 20180111
  Receipt Date: 20190506
  Transmission Date: 20190711
  Serious: Yes (Hospitalization, Other)
  Sender: FDA-Public Use
  Company Number: US-PFIZER INC-2017535466

PATIENT
  Age: 80 Year
  Sex: Female

DRUGS (4)
  1. OMEPRAZOLE. [Concomitant]
     Active Substance: OMEPRAZOLE
     Dosage: UNK
  2. CRESTOR [Concomitant]
     Active Substance: ROSUVASTATIN CALCIUM
     Dosage: UNK
  3. IBRANCE [Suspect]
     Active Substance: PALBOCICLIB
     Indication: BREAST CANCER STAGE IV
     Dosage: 75 MG, CYCLIC
     Dates: start: 201812
  4. SINGULAIR [Concomitant]
     Active Substance: MONTELUKAST SODIUM
     Dosage: UNK

REACTIONS (12)
  - White blood cell count decreased [Unknown]
  - Thrombosis [Unknown]
  - Blood pressure decreased [Unknown]
  - Sepsis [Unknown]
  - Nosocomial infection [Unknown]
  - Paraesthesia [Unknown]
  - Neuropathy peripheral [Unknown]
  - Nausea [Unknown]
  - Night sweats [Unknown]
  - Neutropenia [Unknown]
  - Pulmonary embolism [Unknown]
  - Malaise [Unknown]

NARRATIVE: CASE EVENT DATE: 201901
